FAERS Safety Report 9148557 (Version 1)
Quarter: 2013Q1

REPORT INFORMATION
  Report Type: Spontaneous
  Country: US (occurrence: None)
  Receive Date: 20130228
  Receipt Date: 20130228
  Transmission Date: 20140127
  Serious: Yes (Hospitalization)
  Sender: FDA-Public Use
  Company Number: None

PATIENT
  Age: 12 Year
  Sex: Male

DRUGS (1)
  1. ETOPOSIDE [Suspect]
     Indication: HODGKIN^S DISEASE
     Route: 042
     Dates: start: 20130128, end: 20130128

REACTIONS (6)
  - Flushing [None]
  - Vomiting [None]
  - Cough [None]
  - Rash [None]
  - Dyspnoea [None]
  - Infusion related reaction [None]
